FAERS Safety Report 9656723 (Version 1)
Quarter: 2013Q4

REPORT INFORMATION
  Report Type: Spontaneous
  Country: US (occurrence: None)
  Receive Date: 20131029
  Receipt Date: 20131029
  Transmission Date: 20140711
  Serious: Yes (Other)
  Sender: FDA-Public Use
  Company Number: None

PATIENT
  Age: 68 Year
  Sex: 0

DRUGS (1)
  1. LORAZEPAM [Suspect]
     Indication: ANTIDEPRESSANT THERAPY
     Dosage: ORAL (047)
     Route: 048
     Dates: start: 20131114

REACTIONS (5)
  - Hypertension [None]
  - Exophthalmos [None]
  - Headache [None]
  - Insomnia [None]
  - Nausea [None]
